FAERS Safety Report 11462113 (Version 1)
Quarter: 2015Q3

REPORT INFORMATION
  Report Type: Spontaneous
  Country: US (occurrence: US)
  Receive Date: 20150831
  Receipt Date: 20150831
  Transmission Date: 20151125
  Serious: No
  Sender: FDA-Public Use
  Company Number: US-ELI_LILLY_AND_COMPANY-US201009001834

PATIENT
  Age: 79 Year
  Sex: Male

DRUGS (17)
  1. POTASSIUM [Concomitant]
     Active Substance: POTASSIUM
     Dosage: 10 MG, 2/D
     Route: 048
  2. QUINAPRIL [Concomitant]
     Active Substance: QUINAPRIL\QUINAPRIL HYDROCHLORIDE
     Dosage: 40 MG, 2/D
     Route: 048
  3. AMITIZA [Concomitant]
     Active Substance: LUBIPROSTONE
     Dosage: 24 UG, UNK
     Route: 048
  4. TYLENOL [Concomitant]
     Active Substance: ACETAMINOPHEN
     Dosage: 325 MG, UNK
     Route: 048
  5. NORVASC [Concomitant]
     Active Substance: AMLODIPINE BESYLATE
     Dosage: 5 MG, 2/D
     Route: 048
  6. NEURONTIN [Concomitant]
     Active Substance: GABAPENTIN
     Dosage: 300 MG, 4/D
     Route: 048
  7. TOPROL XL [Concomitant]
     Active Substance: METOPROLOL SUCCINATE
     Dosage: 100 MG, UNK
     Route: 048
  8. NOVOLOG MIX 70/30 [Concomitant]
     Active Substance: INSULIN ASPART
     Dosage: UNK, 4/D
     Route: 058
  9. PRILOSEC [Concomitant]
     Active Substance: OMEPRAZOLE MAGNESIUM
     Dosage: 20 MG, DAILY (1/D)
     Route: 048
  10. CYMBALTA [Suspect]
     Active Substance: DULOXETINE HYDROCHLORIDE
     Indication: PAIN
     Dosage: 20 MG, DAILY (1/D)
     Dates: start: 20100826, end: 20100826
  11. METOPROLOL TARTRATE. [Concomitant]
     Active Substance: METOPROLOL TARTRATE
     Dosage: 100 MG, DAILY (1/D)
     Route: 048
  12. VYTORIN [Concomitant]
     Active Substance: EZETIMIBE\SIMVASTATIN
     Dosage: 20 MG, DAILY (1/D)
     Route: 048
  13. ST. JOSEPH ASPIRIN [Concomitant]
     Dosage: 81 MG, UNK
     Route: 048
  14. SYSTANE (HYPROMELLOSE 2910 (4000 MPA.S)) [Concomitant]
     Active Substance: HYPROMELLOSE 2910 (4000 MPA.S)
  15. METFORMIN [Concomitant]
     Active Substance: METFORMIN HYDROCHLORIDE
     Dosage: 500 MG, 2/D
     Route: 048
  16. VITAMIN D [Concomitant]
     Active Substance: CHOLECALCIFEROL
     Dosage: 1000 U, DAILY (1/D)
     Route: 048
  17. FUROSEMIDE. [Concomitant]
     Active Substance: FUROSEMIDE
     Dosage: 40 MG, DAILY (1/D)
     Route: 048

REACTIONS (3)
  - Genital burning sensation [Recovered/Resolved]
  - Off label use [Recovered/Resolved]
  - Blood urine present [Recovered/Resolved]

NARRATIVE: CASE EVENT DATE: 20100826
